FAERS Safety Report 11976063 (Version 3)
Quarter: 2017Q2

REPORT INFORMATION
  Report Type: Report from Study
  Country: JP (occurrence: JP)
  Receive Date: 20160129
  Receipt Date: 20170620
  Transmission Date: 20170829
  Serious: Yes (Other)
  Sender: FDA-Public Use
  Company Number: JP-SUN PHARMACEUTICAL INDUSTRIES LTD-2016R1-110293

PATIENT
  Age: 38 Year
  Sex: Female

DRUGS (4)
  1. IRINOTECAN [Suspect]
     Active Substance: IRINOTECAN
     Indication: CERVIX CARCINOMA
  2. NEDAPLATIN [Suspect]
     Active Substance: NEDAPLATIN
     Indication: CHEMOTHERAPY
     Dosage: 80 MG/M2 ON DAY 1
     Route: 065
  3. NEDAPLATIN [Suspect]
     Active Substance: NEDAPLATIN
     Indication: CERVIX CARCINOMA
  4. IRINOTECAN [Suspect]
     Active Substance: IRINOTECAN
     Indication: CHEMOTHERAPY
     Dosage: 60 MG/M2 ON DAY 1 AND 8
     Route: 065

REACTIONS (3)
  - Ovarian disorder [Unknown]
  - Uterine disorder [Unknown]
  - Hormone level abnormal [Unknown]
